FAERS Safety Report 8617348-7 (Version None)
Quarter: 2012Q3

REPORT INFORMATION
  Report Type: 
  Country: None (occurrence: None)
  Receive Date: 20120823
  Receipt Date: 20120725
  Transmission Date: 20120928
  Serious: No
  Sender: FDA-Public Use
  Company Number: US-009507513-1207USA011252

PATIENT

DRUGS (2)
  1. NEXPLANON [Suspect]
     Dosage: UNK
  2. NEXPLANON [Suspect]
     Indication: CONTRACEPTION
     Dosage: 1 DF, UNK, FOR 3 YEARS
     Dates: start: 20120724, end: 20120724

REACTIONS (2)
  - COMPLICATION OF DEVICE INSERTION [None]
  - NO ADVERSE EVENT [None]
